FAERS Safety Report 6092736-4 (Version None)
Quarter: 2009Q1

REPORT INFORMATION
  Report Type: 
  Country: None (occurrence: None)
  Receive Date: 20090225
  Receipt Date: 20090218
  Transmission Date: 20090719
  Serious: Yes (Other)
  Sender: FDA-Public Use
  Company Number: CA-JNJFOC-20090205455

PATIENT
  Sex: Female

DRUGS (4)
  1. TYLENOL [Suspect]
  2. TYLENOL [Suspect]
     Indication: DRUG USE FOR UNKNOWN INDICATION
  3. TEGRETOL [Interacting]
     Indication: DRUG USE FOR UNKNOWN INDICATION
  4. ACLASTA [Concomitant]
     Indication: OSTEOPOROSIS

REACTIONS (2)
  - DRUG INTERACTION [None]
  - EPILEPSY [None]
